FAERS Safety Report 11115022 (Version 1)
Quarter: 2015Q2

REPORT INFORMATION
  Report Type: Spontaneous
  Country: CO (occurrence: CO)
  Receive Date: 20150515
  Receipt Date: 20150515
  Transmission Date: 20150821
  Serious: Yes (Other)
  Sender: FDA-Public Use
  Company Number: CO-AMGEN-COLSP2015046585

PATIENT
  Age: 59 Year
  Sex: Female

DRUGS (1)
  1. ENBREL [Suspect]
     Active Substance: ETANERCEPT
     Indication: RHEUMATOID ARTHRITIS
     Dosage: 50 MG, WEEKLY
     Route: 058
     Dates: start: 2012

REACTIONS (6)
  - Asphyxia [Recovered/Resolved]
  - Bronchitis [Recovered/Resolved]
  - Urinary tract infection [Recovered/Resolved]
  - Pharyngitis [Recovered/Resolved]
  - Influenza [Recovered/Resolved]
  - Laryngitis [Recovered/Resolved]

NARRATIVE: CASE EVENT DATE: 201503
